FAERS Safety Report 25716274 (Version 1)
Quarter: 2025Q3

REPORT INFORMATION
  Report Type: Report from Study
  Country: US (occurrence: US)
  Receive Date: 20250822
  Receipt Date: 20250822
  Transmission Date: 20251020
  Serious: Yes (Hospitalization, Other)
  Sender: NOVO NORDISK
  Company Number: US-NOVOPROD-1501253

PATIENT
  Sex: Male

DRUGS (2)
  1. OZEMPIC [Suspect]
     Active Substance: SEMAGLUTIDE
     Dates: start: 202412
  2. OZEMPIC [Suspect]
     Active Substance: SEMAGLUTIDE
     Indication: Product used for unknown indication
     Dates: start: 202407, end: 202411

REACTIONS (8)
  - Fatigue [Unknown]
  - Asthenia [Unknown]
  - Chronic lymphocytic inflammation with pontine perivascular enhancement responsive to steroids [Unknown]
  - Dysarthria [Not Recovered/Not Resolved]
  - Hypoaesthesia [Unknown]
  - Gait inability [Unknown]
  - Vertigo [Unknown]
  - Feeding disorder [Unknown]

NARRATIVE: CASE EVENT DATE: 20250101
